FAERS Safety Report 5153756-7 (Version None)
Quarter: 2006Q4

REPORT INFORMATION
  Report Type: 
  Country: None (occurrence: None)
  Receive Date: 20061120
  Receipt Date: 20061011
  Transmission Date: 20070319
  Serious: Yes (Death)
  Sender: FDA-Public Use
  Company Number: US-ELI_LILLY_AND_COMPANY-US200610002175

PATIENT
  Age: 62 Year
  Sex: Male
  Weight: 79.365 kg

DRUGS (2)
  1. INSULIN [Concomitant]
     Dates: start: 19970325, end: 20060226
  2. ZYPREXA [Suspect]
     Indication: MAJOR DEPRESSION
     Dosage: 2.5 MG, UNK
     Dates: start: 20060104, end: 20060326

REACTIONS (2)
  - CEREBROVASCULAR ACCIDENT [None]
  - DIABETES MELLITUS [None]
